FAERS Safety Report 6418072-1 (Version None)
Quarter: 2009Q4

REPORT INFORMATION
  Report Type: 
  Country: None (occurrence: None)
  Receive Date: 20091028
  Receipt Date: 20091018
  Transmission Date: 20100525
  Serious: Yes (Hospitalization, Other)
  Sender: FDA-Public Use
  Company Number: IL-PFIZER INC-2009284582

PATIENT
  Age: 72 Year

DRUGS (11)
  1. CAMPTOSAR [Suspect]
     Indication: PANCREATIC CARCINOMA
     Dosage: 300 MG, ONCE IN 14 DAYS
     Dates: start: 20091013, end: 20091013
  2. FLUOROURACIL [Suspect]
     Indication: PANCREATIC CARCINOMA
     Dosage: 600 MG, ONCE IN 14 DAYS
     Dates: start: 20091013, end: 20091013
  3. LEUCOVORIN [Suspect]
     Indication: PANCREATIC CARCINOMA
     Dosage: 670 MG, ONCE IN 14 DAYS
     Dates: start: 20091013, end: 20091013
  4. CREON [Concomitant]
  5. INSULIN ASPART [Concomitant]
     Indication: DIABETES MELLITUS
  6. OPTALGIN [Concomitant]
  7. ETOPAN [Concomitant]
  8. OXYCONTIN [Concomitant]
     Dosage: 30 DF, 2X/DAY
  9. OXYCOD [Concomitant]
     Dosage: 4-5 ML, AS NEEDED
  10. LORIVAN [Concomitant]
  11. ARCOXIA [Concomitant]

REACTIONS (5)
  - ASTHENIA [None]
  - DIABETES MELLITUS INADEQUATE CONTROL [None]
  - HAEMOPTYSIS [None]
  - MUSCULAR WEAKNESS [None]
  - ODYNOPHAGIA [None]
